FAERS Safety Report 4865580-0 (Version None)
Quarter: 2005Q4

REPORT INFORMATION
  Report Type: 
  Country: None (occurrence: None)
  Receive Date: 20051220
  Receipt Date: 20051213
  Transmission Date: 20060501
  Serious: Yes (Hospitalization, Other)
  Sender: FDA-Public Use
  Company Number: 2005-US-01076

PATIENT
  Age: 67 Year
  Sex: Female

DRUGS (9)
  1. CLOZAPINE [Suspect]
     Indication: SCHIZOPHRENIA, PARANOID TYPE
     Dosage: 450 MG, QD, ORAL
     Route: 048
     Dates: start: 20000501
  2. TOCOPHEROL CONCENTRATE CAP [Concomitant]
  3. LAXATIVES [Concomitant]
  4. METOPROLOL [Concomitant]
  5. FOLIC ACID [Concomitant]
  6. PANTOPRAZOLE [Concomitant]
  7. FLUVOXAMINE MALEATE [Concomitant]
  8. VALPROIC ACID [Concomitant]
  9. ATORVASTATIN [Concomitant]

REACTIONS (2)
  - GASTROINTESTINAL HAEMORRHAGE [None]
  - PNEUMONIA ASPIRATION [None]
